FAERS Safety Report 9351533 (Version 1)
Quarter: 2013Q2

REPORT INFORMATION
  Report Type: Spontaneous
  Country: US (occurrence: US)
  Receive Date: 20130617
  Receipt Date: 20130617
  Transmission Date: 20140414
  Serious: Yes (Other)
  Sender: FDA-Public Use
  Company Number: US-PFIZER INC-2013175587

PATIENT
  Sex: 0

DRUGS (1)
  1. ESTRING [Suspect]
     Dosage: UNK
     Dates: start: 2013

REACTIONS (2)
  - Vaginal haemorrhage [Recovered/Resolved]
  - Vulvovaginal burning sensation [Unknown]
